FAERS Safety Report 19210240 (Version 1)
Quarter: 2021Q2

REPORT INFORMATION
  Report Type: Spontaneous
  Country: NZ (occurrence: NZ)
  Receive Date: 20210504
  Receipt Date: 20210504
  Transmission Date: 20210717
  Serious: Yes (Other)
  Sender: FDA-Public Use
  Company Number: NZ-ACCORD-222585

PATIENT
  Age: 75 Year
  Sex: Female

DRUGS (2)
  1. MYCOPHENOLIC ACID. [Suspect]
     Active Substance: MYCOPHENOLIC ACID
     Indication: BIRDSHOT CHORIORETINOPATHY
     Dosage: TWICE DAILY FOR SEVERAL YEARS, GRADUALLY TAPERED, CURRENT DOSE OF 500 MG TWICE DAILY
  2. TRIAMCINOLONE [Suspect]
     Active Substance: TRIAMCINOLONE
     Indication: BIRDSHOT CHORIORETINOPATHY
     Route: 031

REACTIONS (3)
  - Infective uveitis [Unknown]
  - Toxoplasmosis [Unknown]
  - Condition aggravated [Unknown]
